FAERS Safety Report 19659056 (Version 2)
Quarter: 2021Q4

REPORT INFORMATION
  Report Type: Spontaneous
  Country: US (occurrence: US)
  Receive Date: 20210805
  Receipt Date: 20211001
  Transmission Date: 20220303
  Serious: No
  Sender: FDA-Public Use
  Company Number: US-ELI_LILLY_AND_COMPANY-US202108001460

PATIENT
  Sex: Female
  Weight: 56.6 kg

DRUGS (2)
  1. REYVOW [Suspect]
     Active Substance: LASMIDITAN
     Indication: Migraine
     Dosage: 100 MG, QD, PRN
     Route: 048
  2. AIMOVIG [Concomitant]
     Active Substance: ERENUMAB-AOOE
     Indication: Product used for unknown indication
     Dosage: 1 DOSAGE FORM, MONTHLY (1/M)
     Route: 065

REACTIONS (8)
  - Imperception [Unknown]
  - Malaise [Unknown]
  - Muscular weakness [Unknown]
  - Dizziness [Recovered/Resolved]
  - Paraesthesia [Recovered/Resolved]
  - Palpitations [Recovered/Resolved]
  - Balance disorder [Recovered/Resolved]
  - Feeling drunk [Recovered/Resolved]
